FAERS Safety Report 5383409-1 (Version None)
Quarter: 2007Q3

REPORT INFORMATION
  Report Type: 
  Country: None (occurrence: None)
  Receive Date: 20070710
  Receipt Date: 20070702
  Transmission Date: 20080115
  Serious: Yes (Hospitalization)
  Sender: FDA-Public Use
  Company Number: BR-GILEAD-2007-0012582

PATIENT
  Sex: Female

DRUGS (4)
  1. VIREAD [Suspect]
     Indication: HIV INFECTION
     Route: 048
     Dates: start: 20070101, end: 20070101
  2. NEVIRAPINE [Concomitant]
     Indication: HIV INFECTION
     Route: 048
     Dates: start: 20070101, end: 20070101
  3. KALETRA [Concomitant]
     Indication: HIV INFECTION
     Dates: start: 20070101, end: 20070101
  4. LAMIVUDINE [Concomitant]
     Indication: HIV INFECTION
     Dates: start: 20070101, end: 20070101

REACTIONS (1)
  - DYSPHAGIA [None]
